FAERS Safety Report 25271021 (Version 1)
Quarter: 2025Q2

REPORT INFORMATION
  Report Type: Spontaneous
  Country: US (occurrence: US)
  Receive Date: 20250506
  Receipt Date: 20250506
  Transmission Date: 20250717
  Serious: No
  Sender: GLAXOSMITHKLINE
  Company Number: US-GSK-US2025050473

PATIENT
  Age: 42 Year
  Sex: Female

DRUGS (8)
  1. BENLYSTA [Suspect]
     Active Substance: BELIMUMAB
     Indication: Systemic lupus erythematosus
     Dosage: 200 MG/ML, WE
     Route: 058
     Dates: start: 20250407
  2. FOLIC ACID [Concomitant]
     Active Substance: FOLIC ACID
     Indication: Product used for unknown indication
     Dosage: 1 DF, QD
  3. HYDROXYCHLOROQUINE [Concomitant]
     Active Substance: HYDROXYCHLOROQUINE
     Indication: Systemic lupus erythematosus
     Dosage: 200 MG, QD
  4. LEVOTHYROXINE [Concomitant]
     Active Substance: LEVOTHYROXINE
     Indication: Thyroid disorder
     Dosage: 0.025 MG, QD
  5. LOSARTAN [Concomitant]
     Active Substance: LOSARTAN
     Indication: Blood pressure measurement
     Dosage: 25 MG, QD
  6. HYDROXYZINE [Concomitant]
     Active Substance: HYDROXYZINE HYDROCHLORIDE
     Indication: Pruritus
     Dosage: 25 MG, BID, PRN
  7. ASPIRIN [Concomitant]
     Active Substance: ASPIRIN
     Indication: Pain
  8. IBUPROFEN [Concomitant]
     Active Substance: IBUPROFEN
     Indication: Pain

REACTIONS (3)
  - Disorientation [Recovered/Resolved]
  - Abdominal distension [Recovered/Resolved]
  - Motion sickness [Recovered/Resolved]

NARRATIVE: CASE EVENT DATE: 20250415
